FAERS Safety Report 23037989 (Version 1)
Quarter: 2023Q4

REPORT INFORMATION
  Report Type: Report from Study
  Country: AT (occurrence: None)
  Receive Date: 20231006
  Receipt Date: 20231006
  Transmission Date: 20240110
  Serious: Yes (Other)
  Sender: FDA-Public Use
  Company Number: 2023A225129

PATIENT
  Age: 7 Year
  Sex: Male

DRUGS (1)
  1. KOSELUGO [Suspect]
     Active Substance: SELUMETINIB
     Indication: Neurofibromatosis
     Dosage: STARTING WITH 30 MG/D, AND WEIGHT ADJUSTED TO 40 MG/D SINCE THEN.
     Route: 048
     Dates: start: 20230323

REACTIONS (1)
  - Subretinal fluid [Unknown]
